FAERS Safety Report 4444063-6 (Version None)
Quarter: 2004Q3

REPORT INFORMATION
  Report Type: 
  Country: None (occurrence: None)
  Receive Date: 20040729
  Receipt Date: 20040109
  Transmission Date: 20050211
  Serious: Yes (Hospitalization)
  Sender: FDA-Public Use
  Company Number: US-JNJFOC-20040101717

PATIENT
  Age: 54 Year
  Sex: Female

DRUGS (1)
  1. RISPERDAL [Suspect]
     Indication: DEPRESSION
     Dosage: ORAL
     Route: 048

REACTIONS (6)
  - MUSCLE CRAMP [None]
  - NIGHTMARE [None]
  - PARKINSONISM [None]
  - PNEUMONIA [None]
  - SUICIDAL IDEATION [None]
  - TACHYCARDIA [None]
